FAERS Safety Report 7007202-9 (Version None)
Quarter: 2010Q3

REPORT INFORMATION
  Report Type: 
  Country: None (occurrence: None)
  Receive Date: 20100913
  Receipt Date: 20100906
  Transmission Date: 20110219
  Serious: Yes (Other)
  Sender: FDA-Public Use
  Company Number: 2010SP033951

PATIENT
  Age: 33 Year
  Sex: Female

DRUGS (11)
  1. MIRTAZAPINE [Suspect]
     Indication: DEPRESSION
     Dosage: 7.5 MG; PO
     Route: 048
     Dates: start: 20100510, end: 20100518
  2. QUAZEPAM [Suspect]
     Indication: INSOMNIA
     Dosage: 15 MG;QD;PO
     Route: 048
     Dates: start: 20061204
  3. BROMAZEPAM (BROMAZEPAM) [Suspect]
     Indication: ANXIETY
     Dosage: 12 MG;QD;PO
     Route: 048
     Dates: start: 20091027
  4. BROMAZEPAM (BROMAZEPAM) [Suspect]
     Indication: TENSION
     Dosage: 12 MG;QD;PO
     Route: 048
     Dates: start: 20091027
  5. TRAZODONE HYDROCHLORIDE [Concomitant]
  6. OLANZAPINE [Concomitant]
  7. SENNOSIDE [Concomitant]
  8. MAGNESIUM OXIDE [Concomitant]
  9. OLANZAPINE [Concomitant]
  10. HIRNAMIN [Concomitant]
  11. ABILIFY [Concomitant]

REACTIONS (7)
  - DRUG INTERACTION [None]
  - FALL [None]
  - MALAISE [None]
  - MOVEMENT DISORDER [None]
  - POOR QUALITY SLEEP [None]
  - SOMNOLENCE [None]
  - TREMOR [None]
